FAERS Safety Report 7584785-1 (Version None)
Quarter: 2011Q2

REPORT INFORMATION
  Report Type: 
  Country: None (occurrence: None)
  Receive Date: 20110630
  Receipt Date: 20110622
  Transmission Date: 20111010
  Serious: Yes (Other)
  Sender: FDA-Public Use
  Company Number: FR-GILEAD-2011-0041011

PATIENT
  Sex: Female
  Weight: 80 kg

DRUGS (3)
  1. TRUVADA [Suspect]
     Indication: HIV INFECTION
  2. REYATAZ [Concomitant]
     Indication: HIV INFECTION
     Dates: start: 20100701
  3. NORVIR [Concomitant]
     Indication: HIV INFECTION
     Dates: start: 20100701

REACTIONS (1)
  - ABORTION SPONTANEOUS [None]
